FAERS Safety Report 5595607-2 (Version None)
Quarter: 2008Q1

REPORT INFORMATION
  Report Type: 
  Country: None (occurrence: None)
  Receive Date: 20080116
  Receipt Date: 20080116
  Transmission Date: 20080703
  Serious: Yes (Other)
  Sender: FDA-Public Use
  Company Number: None

PATIENT
  Age: 42 Year
  Sex: Male
  Weight: 102.0593 kg

DRUGS (2)
  1. PAXIL [Suspect]
     Indication: ANXIETY
     Dosage: 30 MG 2X/DAY PO
     Route: 048
     Dates: start: 20070901
  2. PAXIL [Suspect]
     Indication: DEPRESSION
     Dosage: 30 MG 2X/DAY PO
     Route: 048
     Dates: start: 20070901

REACTIONS (15)
  - CHILLS [None]
  - DEPRESSION [None]
  - DISTURBANCE IN ATTENTION [None]
  - DIZZINESS [None]
  - DYSKINESIA [None]
  - FATIGUE [None]
  - FEELING ABNORMAL [None]
  - FLIGHT OF IDEAS [None]
  - HYPERSOMNIA [None]
  - INSOMNIA [None]
  - MOOD ALTERED [None]
  - MUSCLE SPASMS [None]
  - OBSESSIVE THOUGHTS [None]
  - PALPITATIONS [None]
  - WEIGHT INCREASED [None]
